FAERS Safety Report 11397499 (Version 2)
Quarter: 2015Q3

REPORT INFORMATION
  Report Type: Spontaneous
  Country: US (occurrence: US)
  Receive Date: 20150819
  Receipt Date: 20150914
  Transmission Date: 20151125
  Serious: No
  Sender: FDA-Public Use
  Company Number: US-PFIZER INC-2015275722

PATIENT
  Age: 50 Year
  Sex: Female

DRUGS (6)
  1. ZADITOR [Concomitant]
     Active Substance: KETOTIFEN FUMARATE
     Dosage: UNK, AS NEEDED
  2. ATORVASTATIN [Concomitant]
     Active Substance: ATORVASTATIN
     Dosage: 80 MG PER DAY
  3. CHANTIX [Suspect]
     Active Substance: VARENICLINE TARTRATE
     Indication: SMOKING CESSATION THERAPY
     Dosage: 10 MG, 2X/DAY
     Dates: start: 201305, end: 201502
  4. METOPROLOL [Concomitant]
     Active Substance: METOPROLOL
     Dosage: 300 MG PER DAY
  5. LEVOTHYROXINE. [Concomitant]
     Active Substance: LEVOTHYROXINE
     Dosage: 175 ?G PER DAY
  6. FLUTICASONE [Concomitant]
     Active Substance: FLUTICASONE\FLUTICASONE PROPIONATE
     Dosage: 50 ?G, 2X/DAY

REACTIONS (5)
  - Musculoskeletal disorder [Recovered/Resolved]
  - Musculoskeletal pain [Recovered/Resolved]
  - Activities of daily living impaired [Unknown]
  - Pain in extremity [Recovered/Resolved]
  - Illusion [Recovered/Resolved]

NARRATIVE: CASE EVENT DATE: 201305
